FAERS Safety Report 25190555 (Version 3)
Quarter: 2025Q2

REPORT INFORMATION
  Report Type: Report from Study
  Country: US (occurrence: US)
  Receive Date: 20250411
  Receipt Date: 20250507
  Transmission Date: 20250716
  Serious: Yes (Other)
  Sender: AVADEL CNS PHARMACEUTICALS, LLC
  Company Number: US-AVADEL CNS PHARMACEUTICALS, LLC-2025AVA00607

PATIENT
  Sex: Male
  Weight: 95.238 kg

DRUGS (12)
  1. LUMRYZ [Suspect]
     Active Substance: SODIUM OXYBATE
     Indication: Narcolepsy
     Dosage: 6 G, ONCE NIGHTLY AT BEDTIME
     Route: 048
     Dates: start: 20250214, end: 20250222
  2. LUMRYZ [Suspect]
     Active Substance: SODIUM OXYBATE
     Indication: Cataplexy
     Dosage: 6 G, ONCE NIGHTLY
     Route: 048
     Dates: start: 2025
  3. LUMRYZ [Suspect]
     Active Substance: SODIUM OXYBATE
     Indication: Narcolepsy
     Dosage: 4.5 G, ONCE NIGHTLY
     Route: 048
     Dates: start: 202503, end: 2025
  4. LUMRYZ [Suspect]
     Active Substance: SODIUM OXYBATE
     Indication: Cataplexy
  5. DOXYCYCLINE [Concomitant]
     Active Substance: DOXYCYCLINE
  6. OMEPRAZOLE [Concomitant]
     Active Substance: OMEPRAZOLE
  7. TRETINOIN [Concomitant]
     Active Substance: TRETINOIN
  8. LEVETIRACETAM [Concomitant]
     Active Substance: LEVETIRACETAM
  9. FENOFIBRATE [Concomitant]
     Active Substance: FENOFIBRATE
  10. ROPINIROLE [Concomitant]
     Active Substance: ROPINIROLE
  11. GABAPENTIN [Concomitant]
     Active Substance: GABAPENTIN
     Dosage: UNK, 1 DAILY
  12. ALLEGRA [Concomitant]
     Active Substance: FEXOFENADINE HYDROCHLORIDE

REACTIONS (16)
  - Loss of consciousness [Recovered/Resolved]
  - Syncope [Recovered/Resolved]
  - Feeling abnormal [Unknown]
  - Foot fracture [Not Recovered/Not Resolved]
  - Hypokinesia [Unknown]
  - Asthenia [Unknown]
  - Middle insomnia [Not Recovered/Not Resolved]
  - Dehydration [Unknown]
  - Back pain [Not Recovered/Not Resolved]
  - Fall [Recovered/Resolved]
  - Hallucination, auditory [Unknown]
  - Somnolence [Unknown]
  - Headache [Not Recovered/Not Resolved]
  - Dizziness [Not Recovered/Not Resolved]
  - Drug ineffective [Unknown]
  - Drug effect faster than expected [Recovered/Resolved]

NARRATIVE: CASE EVENT DATE: 20250101
